FAERS Safety Report 16757462 (Version 2)
Quarter: 2019Q3

REPORT INFORMATION
  Report Type: Spontaneous
  Country: US (occurrence: US)
  Receive Date: 20190830
  Receipt Date: 20190916
  Transmission Date: 20191005
  Serious: No
  Sender: FDA-Public Use
  Company Number: US-BIOGEN-2019BI00772069

PATIENT
  Sex: Female

DRUGS (2)
  1. TECFIDERA [Suspect]
     Active Substance: DIMETHYL FUMARATE
     Route: 065
     Dates: start: 20190725, end: 20190907
  2. TECFIDERA [Suspect]
     Active Substance: DIMETHYL FUMARATE
     Indication: MULTIPLE SCLEROSIS
     Route: 048
     Dates: start: 20190725

REACTIONS (13)
  - Pain [Not Recovered/Not Resolved]
  - Swelling [Unknown]
  - Hypoaesthesia [Recovered/Resolved]
  - Hyperhidrosis [Not Recovered/Not Resolved]
  - Diarrhoea [Not Recovered/Not Resolved]
  - Vomiting [Not Recovered/Not Resolved]
  - Swelling face [Unknown]
  - Musculoskeletal disorder [Unknown]
  - Peripheral swelling [Unknown]
  - Abdominal distension [Unknown]
  - Pain in extremity [Unknown]
  - Paraesthesia [Unknown]
  - Flushing [Recovered/Resolved]
